FAERS Safety Report 24553690 (Version 1)
Quarter: 2024Q4

REPORT INFORMATION
  Report Type: Report from Study
  Country: US (occurrence: US)
  Receive Date: 20241028
  Receipt Date: 20241028
  Transmission Date: 20250115
  Serious: No
  Sender: ROCHE
  Company Number: US-ROCHE-3065663

PATIENT
  Age: 12 Year
  Sex: Male
  Weight: 44.9 kg

DRUGS (4)
  1. NUTROPIN AQ [Suspect]
     Active Substance: SOMATROPIN
     Indication: Short stature
     Route: 058
     Dates: start: 20190101
  2. NUTROPIN AQ [Suspect]
     Active Substance: SOMATROPIN
     Dosage: NUSPIN 20 MG PEN, 1.8 MG DAILY
     Route: 058
     Dates: start: 201901
  3. VYVANSE [Concomitant]
     Active Substance: LISDEXAMFETAMINE DIMESYLATE
     Route: 048
  4. DESYREL [Concomitant]
     Active Substance: TRAZODONE HYDROCHLORIDE
     Route: 048
     Dates: start: 20211121

REACTIONS (5)
  - Joint noise [Unknown]
  - Decreased appetite [Unknown]
  - Skin odour abnormal [Unknown]
  - Product dose omission in error [Unknown]
  - Incorrect dose administered [Unknown]
